FAERS Safety Report 6565982-0 (Version None)
Quarter: 2010Q1

REPORT INFORMATION
  Report Type: 
  Country: None (occurrence: None)
  Receive Date: 20100201
  Receipt Date: 20091120
  Transmission Date: 20100710
  Serious: No
  Sender: FDA-Public Use
  Company Number: US-ALLERGAN-0916229US

PATIENT
  Sex: Female

DRUGS (1)
  1. ACUVAIL [Suspect]
     Indication: POSTOPERATIVE CARE
     Dosage: UNK
     Dates: start: 20091101

REACTIONS (1)
  - CORNEAL OEDEMA [None]
